FAERS Safety Report 16236375 (Version 1)
Quarter: 2019Q2

REPORT INFORMATION
  Report Type: Spontaneous
  Country: JP (occurrence: JP)
  Receive Date: 20190425
  Receipt Date: 20190425
  Transmission Date: 20190711
  Serious: Yes (Other)
  Sender: FDA-Public Use
  Company Number: JP-TERSERA THERAPEUTICS LLC-2017SE32824

PATIENT

DRUGS (3)
  1. SUVOREXANT. [Concomitant]
     Active Substance: SUVOREXANT
     Indication: POOR QUALITY SLEEP
     Dosage: UNK
     Route: 065
  2. ZOLADEX [Suspect]
     Active Substance: GOSERELIN ACETATE
     Indication: PROSTATE CANCER
     Dosage: 10.8 MG 12/WEEK
     Route: 058
  3. AMARYL [Concomitant]
     Active Substance: GLIMEPIRIDE
     Indication: DIABETES MELLITUS
     Dosage: DOSE UNKNOWN
     Route: 065

REACTIONS (8)
  - Diabetes mellitus [Recovered/Resolved]
  - Hot flush [Recovered/Resolved]
  - Drug resistance [Unknown]
  - Oedema [Unknown]
  - Blood pressure fluctuation [Unknown]
  - Malignant neoplasm progression [Unknown]
  - Hyperhidrosis [Unknown]
  - Pain [Unknown]

NARRATIVE: CASE EVENT DATE: 20190401
